FAERS Safety Report 17027893 (Version 2)
Quarter: 2019Q4

REPORT INFORMATION
  Report Type: Spontaneous
  Country: CH (occurrence: CH)
  Receive Date: 20191113
  Receipt Date: 20191118
  Transmission Date: 20200122
  Serious: Yes (Life-Threatening, Other)
  Sender: FDA-Public Use
  Company Number: CH-MYLANLABS-2019M1109504

PATIENT
  Age: 78 Year
  Sex: Male
  Weight: 83 kg

DRUGS (14)
  1. ADCETRIS [Interacting]
     Active Substance: BRENTUXIMAB VEDOTIN
     Indication: HODGKIN^S DISEASE
     Dosage: 140 MILLIGRAM
     Route: 041
     Dates: start: 20180829
  2. PANTOPRAZOLE [Interacting]
     Active Substance: PANTOPRAZOLE
     Indication: PRODUCT USED FOR UNKNOWN INDICATION
     Dosage: UNK, DOSAGE INCONNU
     Route: 048
     Dates: end: 201901
  3. ADCETRIS [Interacting]
     Active Substance: BRENTUXIMAB VEDOTIN
     Dosage: 120 MILLIGRAM, Q3W
     Route: 065
     Dates: start: 20181011
  4. MACROGOL [Interacting]
     Active Substance: POLYETHYLENE GLYCOLS
     Indication: PRODUCT USED FOR UNKNOWN INDICATION
     Dosage: UNK
     Route: 065
     Dates: end: 201901
  5. DISTRANEURIN                       /00027501/ [Interacting]
     Active Substance: CLOMETHIAZOLE
     Indication: PRODUCT USED FOR UNKNOWN INDICATION
     Dosage: 1 DOSAGE FORM, PRN, AS NECESSARY
     Route: 048
     Dates: end: 201901
  6. ADCETRIS [Interacting]
     Active Substance: BRENTUXIMAB VEDOTIN
     Dosage: 120 MILLIGRAM, Q3W
     Route: 065
     Dates: start: 20181122
  7. ZOLPIDEM [Interacting]
     Active Substance: ZOLPIDEM TARTRATE
     Indication: PRODUCT USED FOR UNKNOWN INDICATION
     Dosage: 1 DOSAGE FORM, PRN, AS NECESSARY
     Route: 048
     Dates: end: 201901
  8. ADCETRIS [Interacting]
     Active Substance: BRENTUXIMAB VEDOTIN
     Dosage: 120 MILLIGRAM, Q3W
     Route: 065
     Dates: start: 20180920
  9. ISOPTIN [Suspect]
     Active Substance: VERAPAMIL HYDROCHLORIDE
     Indication: ATRIAL FIBRILLATION
     Dosage: 120 MILLIGRAM
     Route: 048
  10. ADCETRIS [Interacting]
     Active Substance: BRENTUXIMAB VEDOTIN
     Dosage: 120 MILLIGRAM, Q3W
     Route: 065
     Dates: start: 20181213, end: 201901
  11. ADCETRIS [Interacting]
     Active Substance: BRENTUXIMAB VEDOTIN
     Dosage: 120 MILLIGRAM, Q3W
     Route: 065
     Dates: start: 20181101
  12. SORTIS [Interacting]
     Active Substance: ATORVASTATIN
     Indication: HYPERCHOLESTEROLAEMIA
     Dosage: 20 MILLIGRAM
     Route: 048
     Dates: end: 201901
  13. ALLOPUR [Interacting]
     Active Substance: ALLOPURINOL
     Indication: HYPERURICAEMIA
     Dosage: 100 MILLIGRAM
     Route: 048
     Dates: end: 201901
  14. PARACETAMOL [Interacting]
     Active Substance: ACETAMINOPHEN
     Indication: PAIN
     Dosage: 1 GRAM, PRN, AS NECESSARY
     Route: 048
     Dates: end: 201901

REACTIONS (2)
  - Drug interaction [Unknown]
  - Hepatitis cholestatic [Recovered/Resolved]

NARRATIVE: CASE EVENT DATE: 20181101
